FAERS Safety Report 11280003 (Version 8)
Quarter: 2016Q1

REPORT INFORMATION
  Report Type: Report from Study
  Country: JP (occurrence: JP)
  Receive Date: 20150717
  Receipt Date: 20160205
  Transmission Date: 20160525
  Serious: Yes (Death, Hospitalization, Disabling)
  Sender: FDA-Public Use
  Company Number: JP-EISAI MEDICAL RESEARCH-EC-2015-008623

PATIENT
  Age: 70 Year
  Sex: Female
  Weight: 36 kg

DRUGS (19)
  1. LENVIMA [Suspect]
     Active Substance: LENVATINIB
     Route: 048
     Dates: start: 20150707, end: 20150727
  2. LEVOTHYROXINE SODIUM HYDRATE [Concomitant]
  3. NEXIUM [Concomitant]
     Active Substance: ESOMEPRAZOLE MAGNESIUM
  4. DEPAS [Concomitant]
     Active Substance: ETIZOLAM
  5. BROTIZOLAM [Concomitant]
     Active Substance: BROTIZOLAM
  6. TRYPTANOL [Concomitant]
     Active Substance: AMITRIPTYLINE
  7. REFLEX [Concomitant]
     Active Substance: MIRTAZAPINE
  8. LENVIMA [Suspect]
     Active Substance: LENVATINIB
     Route: 048
     Dates: start: 20150803, end: 20150914
  9. LYRICA [Concomitant]
     Active Substance: PREGABALIN
  10. PROPETO [Concomitant]
  11. LENVIMA [Suspect]
     Active Substance: LENVATINIB
     Route: 048
     Dates: start: 20150622, end: 20150625
  12. LOXOPROFEN [Concomitant]
     Active Substance: LOXOPROFEN
  13. ALFAROL [Concomitant]
     Active Substance: ALFACALCIDOL
  14. PREDNISOLONE. [Concomitant]
     Active Substance: PREDNISOLONE
  15. LENVIMA [Suspect]
     Active Substance: LENVATINIB
     Indication: PAPILLARY THYROID CANCER
     Route: 048
     Dates: start: 20150608, end: 20150621
  16. LENVIMA [Suspect]
     Active Substance: LENVATINIB
     Route: 048
     Dates: start: 20150915, end: 20150924
  17. TALION [Concomitant]
     Active Substance: BEPOTASTINE
  18. BARACLUDE [Concomitant]
     Active Substance: ENTECAVIR
  19. PASTARON [Concomitant]
     Active Substance: UREA

REACTIONS (3)
  - Erythema multiforme [Recovered/Resolved]
  - Venous haemorrhage [Fatal]
  - Fistula [Not Recovered/Not Resolved]

NARRATIVE: CASE EVENT DATE: 20150626
